FAERS Safety Report 12706234 (Version 4)
Quarter: 2020Q4

REPORT INFORMATION
  Report Type: Spontaneous
  Country: US (occurrence: US)
  Receive Date: 20160901
  Receipt Date: 20201027
  Transmission Date: 20210113
  Serious: No
  Sender: FDA-Public Use
  Company Number: US-JAZZ-2016-US-007885

PATIENT
  Age: 27 Year
  Sex: Female

DRUGS (30)
  1. RETIN-A [Concomitant]
     Active Substance: TRETINOIN
  2. IBUPROFEN. [Suspect]
     Active Substance: IBUPROFEN
     Indication: ABDOMINAL PAIN UPPER
  3. PREDNISONE. [Concomitant]
     Active Substance: PREDNISONE
  4. XYREM [Suspect]
     Active Substance: SODIUM OXYBATE
     Dosage: 4.5 G, BID
     Route: 048
     Dates: start: 201203, end: 2015
  5. XYREM [Suspect]
     Active Substance: SODIUM OXYBATE
     Dosage: 4.5 G, BID
     Route: 048
     Dates: start: 201605, end: 2020
  6. OMEPRAZOLE. [Concomitant]
     Active Substance: OMEPRAZOLE
  7. MIRENA [Concomitant]
     Active Substance: LEVONORGESTREL
  8. CONCERTA [Concomitant]
     Active Substance: METHYLPHENIDATE HYDROCHLORIDE
  9. EFFEXOR [Concomitant]
     Active Substance: VENLAFAXINE HYDROCHLORIDE
  10. BOTOX [Concomitant]
     Active Substance: ONABOTULINUMTOXINA
  11. MAGNESIUM OXIDE. [Concomitant]
     Active Substance: MAGNESIUM OXIDE
  12. XYREM [Suspect]
     Active Substance: SODIUM OXYBATE
     Indication: CATAPLEXY
     Dosage: DOSE ADJUSTMENTS
     Route: 048
  13. XYREM [Suspect]
     Active Substance: SODIUM OXYBATE
     Dosage: 2.25 G, BID
     Route: 048
     Dates: start: 201602, end: 201603
  14. XYREM [Suspect]
     Active Substance: SODIUM OXYBATE
     Dosage: 3 G, BID
     Route: 048
     Dates: start: 201603, end: 201605
  15. CYMBALTA [Concomitant]
     Active Substance: DULOXETINE HYDROCHLORIDE
     Indication: MIGRAINE
  16. CYMBALTA [Concomitant]
     Active Substance: DULOXETINE HYDROCHLORIDE
     Indication: NEURALGIA
  17. CLINDAMYCIN HYDROCHLORIDE. [Concomitant]
     Active Substance: CLINDAMYCIN HYDROCHLORIDE
  18. XYREM [Suspect]
     Active Substance: SODIUM OXYBATE
     Indication: NARCOLEPSY
     Dosage: 1.5 G, BID
     Route: 048
     Dates: start: 200808, end: 200809
  19. MAXALT [Concomitant]
     Active Substance: RIZATRIPTAN BENZOATE
     Indication: MIGRAINE
  20. PANTOPRAZOLE SODIUM SESQUIHYDRATE [Concomitant]
     Active Substance: PANTOPRAZOLE SODIUM
  21. CITALOPRAM HYDROBROMIDE. [Concomitant]
     Active Substance: CITALOPRAM HYDROBROMIDE
  22. DOXEPIN HYDROCHLORIDE. [Concomitant]
     Active Substance: DOXEPIN HYDROCHLORIDE
     Indication: MIGRAINE
  23. DEXEDRINE [Concomitant]
     Active Substance: DEXTROAMPHETAMINE SULFATE
     Indication: SOMNOLENCE
  24. XYREM [Suspect]
     Active Substance: SODIUM OXYBATE
     Dosage: 1.5 G, BID
     Route: 048
     Dates: start: 201512, end: 2016
  25. XYREM [Suspect]
     Active Substance: SODIUM OXYBATE
     Dosage: 4.5 G, BID
     Route: 048
     Dates: start: 200906, end: 201106
  26. VERAPAMIL HYDROCHLORIDE. [Suspect]
     Active Substance: VERAPAMIL HYDROCHLORIDE
     Indication: RASH
  27. ALEVE [Suspect]
     Active Substance: NAPROXEN SODIUM
     Indication: ABDOMINAL PAIN UPPER
  28. ZOLPIDEM TARTRATE. [Concomitant]
     Active Substance: ZOLPIDEM TARTRATE
  29. LATISSE [Concomitant]
     Active Substance: BIMATOPROST
  30. ZALEPLON. [Concomitant]
     Active Substance: ZALEPLON

REACTIONS (12)
  - Increased appetite [Not Recovered/Not Resolved]
  - Unevaluable event [Recovering/Resolving]
  - Pain [Recovering/Resolving]
  - Weight increased [Not Recovered/Not Resolved]
  - Parasomnia [Unknown]
  - Condition aggravated [Not Recovered/Not Resolved]
  - Rash [Recovered/Resolved]
  - Abdominal pain upper [Recovered/Resolved]
  - Therapeutic response decreased [Unknown]
  - Blepharospasm [Not Recovered/Not Resolved]
  - Muscle spasms [Not Recovered/Not Resolved]
  - Muscle disorder [Recovering/Resolving]

NARRATIVE: CASE EVENT DATE: 200808
